FAERS Safety Report 16445607 (Version 2)
Quarter: 2019Q2

REPORT INFORMATION
  Report Type: Report from Study
  Country: US (occurrence: US)
  Receive Date: 20190618
  Receipt Date: 20190625
  Transmission Date: 20190711
  Serious: Yes (Hospitalization, Other)
  Sender: FDA-Public Use
  Company Number: US-CLOVIS ONCOLOGY-CLO-2019-000845

PATIENT
  Sex: Female

DRUGS (1)
  1. RUBRACA [Suspect]
     Active Substance: RUCAPARIB CAMSYLATE
     Indication: OVARIAN CANCER
     Dosage: 500 MG, BID
     Route: 048
     Dates: start: 20190419

REACTIONS (21)
  - Thirst [Unknown]
  - Diarrhoea [Unknown]
  - Breast cancer [Unknown]
  - Dysuria [Unknown]
  - Somnolence [Unknown]
  - Bone pain [Unknown]
  - Blood pressure increased [Not Recovered/Not Resolved]
  - Tremor [Unknown]
  - Dehydration [Unknown]
  - Depressed mood [Unknown]
  - Gastroenteritis viral [Unknown]
  - Renal pain [Unknown]
  - Anxiety [Unknown]
  - Dyspnoea [Unknown]
  - Breast disorder [Unknown]
  - Asthenia [Not Recovered/Not Resolved]
  - Abdominal pain [Unknown]
  - Insomnia [Unknown]
  - Dizziness [Unknown]
  - Adverse event [Unknown]
  - Myalgia [Unknown]

NARRATIVE: CASE EVENT DATE: 2019
